FAERS Safety Report 6585805-3 (Version None)
Quarter: 2010Q1

REPORT INFORMATION
  Report Type: 
  Country: None (occurrence: None)
  Receive Date: 20100217
  Receipt Date: 20100203
  Transmission Date: 20100710
  Serious: Yes (Hospitalization, Other)
  Sender: FDA-Public Use
  Company Number: US-ROCHE-649889

PATIENT
  Sex: Male
  Weight: 77.1 kg

DRUGS (2)
  1. ACCUTANE [Suspect]
     Route: 048
     Dates: start: 19971210
  2. ACCUTANE [Suspect]
     Dosage: DOSE INCREASED; 40 MG ONCE DAILY ALTERNATING WITH 80 MG ONCE DAILY EVERY OTHER DAY
     Route: 048
     Dates: start: 19971230, end: 19980131

REACTIONS (8)
  - ABSCESS [None]
  - CROHN'S DISEASE [None]
  - DEPRESSION [None]
  - FISTULA [None]
  - INFLAMMATORY BOWEL DISEASE [None]
  - LIP DRY [None]
  - SMALL INTESTINAL OBSTRUCTION [None]
  - XEROSIS [None]
